FAERS Safety Report 12833154 (Version 2)
Quarter: 2016Q4

REPORT INFORMATION
  Report Type: Report from Study
  Country: CA (occurrence: CA)
  Receive Date: 20161010
  Receipt Date: 20161018
  Transmission Date: 20170207
  Serious: Yes (Death, Hospitalization)
  Sender: FDA-Public Use
  Company Number: CA-BIOGEN-2016BI00301318

PATIENT
  Age: 59 Year
  Sex: Male

DRUGS (1)
  1. FAMPYRA [Suspect]
     Active Substance: DALFAMPRIDINE
     Indication: GAIT DISTURBANCE
     Route: 048
     Dates: start: 20140201, end: 20161002

REACTIONS (4)
  - White blood cell count decreased [Unknown]
  - Pneumonia [Fatal]
  - Renal impairment [Unknown]
  - Platelet count decreased [Unknown]

NARRATIVE: CASE EVENT DATE: 20161002
